FAERS Safety Report 18458117 (Version 1)
Quarter: 2020Q4

REPORT INFORMATION
  Report Type: Report from Study
  Country: US (occurrence: US)
  Receive Date: 20201103
  Receipt Date: 20201103
  Transmission Date: 20210114
  Serious: No
  Sender: FDA-Public Use
  Company Number: US-IPSEN BIOPHARMACEUTICALS, INC.-2020-20646

PATIENT
  Age: 59 Year
  Sex: Male

DRUGS (3)
  1. SOMATULINE DEPOT [Suspect]
     Active Substance: LANREOTIDE ACETATE
     Indication: NEUROENDOCRINE TUMOUR
     Route: 065
     Dates: start: 20190517
  2. OXYCODONE [Concomitant]
     Active Substance: OXYCODONE
  3. EVEROLIMUS. [Concomitant]
     Active Substance: EVEROLIMUS

REACTIONS (3)
  - Pain in extremity [Unknown]
  - Product dose omission issue [Unknown]
  - Unevaluable event [Unknown]
